FAERS Safety Report 8673019 (Version 2)
Quarter: 2012Q4

REPORT INFORMATION
  Report Type: 
  Country: US (occurrence: US)
  Receive Date: 20120719
  Receipt Date: 20121004
  Transmission Date: 20130627
  Serious: Yes (Hospitalization, Other)
  Sender: FDA-Public Use
  Company Number: US-ELI_LILLY_AND_COMPANY-US201207003632

PATIENT
  Age: 68 Year
  Sex: Female

DRUGS (26)
  1. FORTEO [Suspect]
     Dosage: 20 ug, qd
     Dates: start: 20120223
  2. FORTEO [Suspect]
     Dosage: 20 ug, qd
     Dates: start: 20120223
  3. AMLODIPINE BESYLATE [Concomitant]
     Dosage: UNK
  4. CHLORPHENIRAMINE MALEATE [Concomitant]
  5. HYDROCHLOROTHIAZIDE [Concomitant]
  6. LEVOTHYROXINE [Concomitant]
     Indication: THYROID DISORDER
  7. HUMIRA [Concomitant]
     Indication: RHEUMATOID ARTHRITIS
  8. ALLERGY MEDICATION [Concomitant]
     Dosage: UNK
  9. PROVENTIL                               /USA/ [Concomitant]
     Dosage: UNK
  10. ASPIRIN [Concomitant]
     Dosage: 81 mg, unknown
  11. CITRICAL [Concomitant]
     Dosage: UNK
  12. VITAMIN D [Concomitant]
     Dosage: UNK
  13. VITAMIN B12 [Concomitant]
     Dosage: UNK
  14. LUNESTA [Concomitant]
     Indication: INSOMNIA
     Dosage: UNK
  15. FOLIC ACID [Concomitant]
     Dosage: UNK
  16. FUROSEMIDE [Concomitant]
     Dosage: UNK
  17. NORCO [Concomitant]
     Dosage: UNK
  18. LISINOPRIL [Concomitant]
     Dosage: UNK
  19. METOPROLOL TARTRATE [Concomitant]
     Dosage: UNK
  20. FISH OIL [Concomitant]
     Dosage: UNK
  21. OMEPRAZOLE [Concomitant]
     Dosage: UNK
  22. POTASSIUM [Concomitant]
     Dosage: UNK
  23. PRAVASTATIN [Concomitant]
     Dosage: UNK
  24. PREDNISONE [Concomitant]
     Dosage: UNK
  25. SPIRONOLACTONE [Concomitant]
     Dosage: UNK
  26. TICAGRELOR [Concomitant]
     Dosage: UNK

REACTIONS (8)
  - Loss of consciousness [Recovered/Resolved]
  - Stent malfunction [Recovering/Resolving]
  - Nausea [Unknown]
  - Dyspnoea [Unknown]
  - Bone disorder [Recovered/Resolved]
  - Food intolerance [Unknown]
  - Tension [Unknown]
  - Memory impairment [Unknown]
